FAERS Safety Report 10467575 (Version 3)
Quarter: 2015Q2

REPORT INFORMATION
  Report Type: Spontaneous
  Country: US (occurrence: US)
  Receive Date: 20140922
  Receipt Date: 20150624
  Transmission Date: 20150821
  Serious: Yes (Hospitalization, Other)
  Sender: FDA-Public Use
  Company Number: US-BAYER-2014-140788

PATIENT
  Age: 21 Year
  Sex: Female
  Weight: 58.96 kg

DRUGS (7)
  1. FLAGYL [Concomitant]
     Active Substance: METRONIDAZOLE\METRONIDAZOLE HYDROCHLORIDE
  2. VICODIN [Concomitant]
     Active Substance: ACETAMINOPHEN\HYDROCODONE BITARTRATE
  3. BACTRIM [Concomitant]
     Active Substance: SULFAMETHOXAZOLE\TRIMETHOPRIM
  4. MOTRIN [Concomitant]
     Active Substance: IBUPROFEN
  5. ZOFRAN [Concomitant]
     Active Substance: ONDANSETRON HYDROCHLORIDE
  6. MORPHINE [Concomitant]
     Active Substance: MORPHINE
  7. MIRENA [Suspect]
     Active Substance: LEVONORGESTREL
     Indication: CONTRACEPTION
     Dosage: 20 MCG/24HR, CONT
     Route: 015
     Dates: start: 20120813, end: 20130201

REACTIONS (13)
  - Medical device discomfort [None]
  - Genital haemorrhage [None]
  - Abdominal pain [None]
  - General physical health deterioration [None]
  - Fear [None]
  - Injury [None]
  - Emotional distress [None]
  - Anxiety [None]
  - Internal injury [None]
  - Depression [None]
  - Uterine perforation [None]
  - Pelvic pain [None]
  - Depressed mood [None]

NARRATIVE: CASE EVENT DATE: 201302
